FAERS Safety Report 25794809 (Version 1)
Quarter: 2025Q3

REPORT INFORMATION
  Report Type: Spontaneous
  Country: CH (occurrence: CH)
  Receive Date: 20250912
  Receipt Date: 20250912
  Transmission Date: 20251021
  Serious: Yes (Other)
  Sender: BAXTER
  Company Number: None

PATIENT
  Age: 67 Year
  Sex: Male

DRUGS (6)
  1. IFOSFAMIDE [Suspect]
     Active Substance: IFOSFAMIDE
     Indication: Undifferentiated sarcoma
     Route: 042
     Dates: start: 20250804, end: 20250806
  2. MESNA [Suspect]
     Active Substance: MESNA
     Route: 042
     Dates: start: 20250804, end: 20250806
  3. DOXORUBICIN [Concomitant]
     Active Substance: DOXORUBICIN
     Indication: Undifferentiated sarcoma
     Route: 065
     Dates: start: 20250804, end: 20250806
  4. Palonosetron labatec [Concomitant]
     Dosage: 0.25 MG, QD
     Route: 042
  5. DEXAMETHASONE [Concomitant]
     Active Substance: DEXAMETHASONE
     Dosage: 4 MG, QD
     Route: 065
  6. PREDNISONE [Concomitant]
     Active Substance: PREDNISONE
     Dosage: 1 MG, QD
     Route: 048

REACTIONS (1)
  - Hallucination, visual [Recovered/Resolved]

NARRATIVE: CASE EVENT DATE: 20250807
